FAERS Safety Report 12549836 (Version 3)
Quarter: 2016Q3

REPORT INFORMATION
  Report Type: Report from Study
  Country: ES (occurrence: ES)
  Receive Date: 20160712
  Receipt Date: 20160901
  Transmission Date: 20161109
  Serious: Yes (Death, Hospitalization)
  Sender: FDA-Public Use
  Company Number: ES-SEATTLE GENETICS-2016SGN01043

PATIENT

DRUGS (10)
  1. PLACEBO FOR BRENTUXIMAB VEDOTIN [Suspect]
     Active Substance: BRENTUXIMAB VEDOTIN
     Indication: ANAPLASTIC LARGE CELL LYMPHOMA T- AND NULL-CELL TYPES
     Dosage: 1.8 MG/KG, Q21D
     Route: 042
     Dates: start: 20160429, end: 20160610
  2. SEPTRIN [Concomitant]
     Active Substance: SULFAMETHOXAZOLE\TRIMETHOPRIM
     Indication: INFECTION PROPHYLAXIS
     Dosage: UNK
     Dates: start: 20160510
  3. VINCRISTINE [Suspect]
     Active Substance: VINCRISTINE
     Indication: ANAPLASTIC LARGE CELL LYMPHOMA T- AND NULL-CELL TYPES
     Dosage: 1.4 MG/M2, Q21D
     Route: 042
     Dates: start: 20160429, end: 20160610
  4. FILGRASTIM [Concomitant]
     Active Substance: FILGRASTIM
     Indication: PROPHYLAXIS
     Dosage: 300 UNK, UNK
     Dates: start: 20160623, end: 20160625
  5. LEVOTIROXINA [Concomitant]
     Active Substance: LEVOTHYROXINE SODIUM
     Indication: THYROID HORMONE REPLACEMENT THERAPY
     Dosage: 50 ?G, UNK
     Dates: start: 20160510
  6. DOXORUBICIN [Suspect]
     Active Substance: DOXORUBICIN
     Indication: ANAPLASTIC LARGE CELL LYMPHOMA T- AND NULL-CELL TYPES
     Dosage: 50 MG/M2, Q21D
     Route: 042
     Dates: start: 20160429, end: 20160610
  7. OMEPRAZOL                          /00661201/ [Concomitant]
     Active Substance: OMEPRAZOLE
     Indication: PROPHYLAXIS
     Dosage: 20 MG, UNK
     Dates: start: 20160510
  8. CYCLOPHOSPHAMIDE. [Suspect]
     Active Substance: CYCLOPHOSPHAMIDE
     Indication: ANAPLASTIC LARGE CELL LYMPHOMA T- AND NULL-CELL TYPES
     Dosage: 750 UNK, UNK
     Route: 042
     Dates: start: 20160429, end: 20160610
  9. PREDNISONE. [Suspect]
     Active Substance: PREDNISONE
     Indication: ANAPLASTIC LARGE CELL LYMPHOMA T- AND NULL-CELL TYPES
     Dosage: 100 MG, QCYCLE
     Route: 048
     Dates: start: 20160429, end: 20160610
  10. ACICLOVIR [Concomitant]
     Active Substance: ACYCLOVIR
     Indication: ANTIBIOTIC PROPHYLAXIS
     Dosage: 400 MG, UNK
     Dates: start: 20160510

REACTIONS (1)
  - Confusional state [Fatal]

NARRATIVE: CASE EVENT DATE: 20160630
